FAERS Safety Report 23661481 (Version 1)
Quarter: 2024Q1

REPORT INFORMATION
  Report Type: Spontaneous
  Country: HR (occurrence: HR)
  Receive Date: 20240322
  Receipt Date: 20240322
  Transmission Date: 20240410
  Serious: Yes (Hospitalization)
  Sender: FDA-Public Use
  Company Number: HR-TEVA-VS-3165710

PATIENT
  Age: 24 Year
  Sex: Female

DRUGS (3)
  1. AJOVY [Suspect]
     Active Substance: FREMANEZUMAB-VFRM
     Indication: Headache
     Route: 058
  2. OXITRIPTAN [Suspect]
     Active Substance: OXITRIPTAN
     Indication: Headache
     Dosage: PER OS AS NEEDED
     Route: 065
  3. UNSPECIFIED INGREDIENT [Suspect]
     Active Substance: UNSPECIFIED INGREDIENT
     Indication: Headache
     Route: 065

REACTIONS (1)
  - Haemangioma [Unknown]
